FAERS Safety Report 10349601 (Version 2)
Quarter: 2014Q4

REPORT INFORMATION
  Report Type: Spontaneous
  Country: US (occurrence: US)
  Receive Date: 20140730
  Receipt Date: 20141009
  Transmission Date: 20150528
  Serious: Yes (Other)
  Sender: FDA-Public Use
  Company Number: US-ASTRAZENECA-2014SE52793

PATIENT
  Age: 87 Year
  Sex: Male

DRUGS (4)
  1. ENTOCORT EC [Suspect]
     Active Substance: BUDESONIDE
     Indication: CROHN^S DISEASE
     Dosage: UNKNOWN, DAILY
     Route: 048
     Dates: start: 201407
  2. ENTOCORT EC [Suspect]
     Active Substance: BUDESONIDE
     Indication: CROHN^S DISEASE
     Route: 048
     Dates: start: 201403, end: 201407
  3. PPI [Concomitant]
     Indication: GASTROOESOPHAGEAL REFLUX DISEASE
  4. OMEPRAZOLE. [Suspect]
     Active Substance: OMEPRAZOLE
     Route: 048

REACTIONS (2)
  - Cushing^s syndrome [Recovered/Resolved with Sequelae]
  - Cushingoid [Recovered/Resolved with Sequelae]

NARRATIVE: CASE EVENT DATE: 201403
